FAERS Safety Report 23228003 (Version 1)
Quarter: 2023Q4

REPORT INFORMATION
  Report Type: Report from Study
  Country: CH (occurrence: CH)
  Receive Date: 20231125
  Receipt Date: 20231125
  Transmission Date: 20240109
  Serious: Yes (Hospitalization, Other)
  Sender: FDA-Public Use
  Company Number: None

PATIENT
  Age: 76 Year
  Sex: Male

DRUGS (10)
  1. HYDROCORTONE [Suspect]
     Active Substance: HYDROCORTISONE
     Indication: Product used for unknown indication
     Dosage: 30 MILLIGRAM DAILY; 20 MG-10MG-0
     Route: 048
     Dates: start: 20230609, end: 20230615
  2. DEXAMETHASONE [Suspect]
     Active Substance: DEXAMETHASONE
     Indication: Product used for unknown indication
     Dosage: 2 MILLIGRAM DAILY;
     Route: 048
     Dates: start: 20220926, end: 20230609
  3. DEXAMETHASONE [Suspect]
     Active Substance: DEXAMETHASONE
     Dosage: 4 MILLIGRAM DAILY; FORM STRENGTH : 4 MG, THERAPY END DATE : NASK
     Route: 048
     Dates: start: 20230615
  4. PANTOPRAZOL SPIRIG [Concomitant]
     Indication: Product used for unknown indication
     Dosage: 40 MILLIGRAM DAILY;
     Route: 048
     Dates: start: 20210813
  5. CALCIUM\CHOLECALCIFEROL [Concomitant]
     Active Substance: CALCIUM\CHOLECALCIFEROL
     Indication: Product used for unknown indication
     Dosage: 1 DOSAGE FORMS DAILY; 1000MG/800 IU 1-0-0
     Route: 048
     Dates: start: 20210813
  6. VITAMIN B6 [Concomitant]
     Active Substance: PYRIDOXINE HYDROCHLORIDE
     Indication: Product used for unknown indication
     Route: 048
     Dates: start: 20120813
  7. FOLIC ACID [Concomitant]
     Active Substance: FOLIC ACID
     Indication: Product used for unknown indication
     Route: 048
     Dates: start: 20220926
  8. ACLASTA [Concomitant]
     Active Substance: ZOLEDRONIC ACID
     Indication: Product used for unknown indication
     Dates: start: 20220823
  9. CIPRALEX [Concomitant]
     Active Substance: ESCITALOPRAM OXALATE
     Indication: Product used for unknown indication
     Route: 048
     Dates: start: 20221213
  10. DIETARY SUPPLEMENT\HERBALS [Concomitant]
     Active Substance: DIETARY SUPPLEMENT\HERBALS
     Indication: Product used for unknown indication
     Route: 048
     Dates: start: 20230130

REACTIONS (5)
  - Diabetes mellitus [Recovered/Resolved]
  - Fatigue [Recovering/Resolving]
  - Asthenia [Recovering/Resolving]
  - Apathy [Recovering/Resolving]
  - C-reactive protein increased [Unknown]

NARRATIVE: CASE EVENT DATE: 20230601
